FAERS Safety Report 23514856 (Version 1)
Quarter: 2024Q1

REPORT INFORMATION
  Report Type: Spontaneous
  Country: US (occurrence: US)
  Receive Date: 20240212
  Receipt Date: 20240212
  Transmission Date: 20240410
  Serious: Yes (Hospitalization, Other)
  Sender: FDA-Public Use
  Company Number: US-PRINSTON PHARMACEUTICAL INC.-2024PRN00046

PATIENT
  Sex: Male

DRUGS (2)
  1. LOSARTAN POTASSIUM [Suspect]
     Active Substance: LOSARTAN POTASSIUM
     Indication: Hypertension
     Dosage: 100 MG
     Route: 048
  2. LOSARTAN POTASSIUM [Suspect]
     Active Substance: LOSARTAN POTASSIUM
     Dosage: 100 MG
     Route: 048
     Dates: start: 20240124, end: 20240124

REACTIONS (7)
  - Catheterisation cardiac [Recovered/Resolved]
  - Hypertension [Recovered/Resolved]
  - Prostate cancer [Recovered/Resolved]
  - Hypotension [Recovering/Resolving]
  - Product quality issue [Unknown]
  - Hypoacusis [Not Recovered/Not Resolved]
  - Asthenia [Recovering/Resolving]

NARRATIVE: CASE EVENT DATE: 20110101
